FAERS Safety Report 8773889 (Version 1)
Quarter: 2012Q4

REPORT INFORMATION
  Report Type: 
  Country: JP (occurrence: JP)
  Receive Date: 20120907
  Receipt Date: 20120907
  Transmission Date: 20130627
  Serious: Yes (Death)
  Sender: FDA-Public Use
  Company Number: JP-ROCHE-1109439

PATIENT
  Sex: Male

DRUGS (3)
  1. KYTRIL [Suspect]
     Indication: PRODUCT USED FOR UNKNOWN INDICATION
     Route: 041
  2. GEMZAR [Suspect]
     Indication: PANCREATIC CARCINOMA
     Dosage: Dosage is uncertain.
     Route: 065
  3. DECADRON [Suspect]
     Indication: PRODUCT USED FOR UNKNOWN INDICATION
     Dosage: Dosage is uncertain.
     Route: 065

REACTIONS (2)
  - Thrombosis [Recovered/Resolved]
  - Pancreatic carcinoma [Fatal]
